FAERS Safety Report 9365813 (Version 1)
Quarter: 2013Q2

REPORT INFORMATION
  Report Type: Spontaneous
  Country: US (occurrence: US)
  Receive Date: 20130625
  Receipt Date: 20130625
  Transmission Date: 20140414
  Serious: Yes (Hospitalization)
  Sender: FDA-Public Use
  Company Number: US-ASTRAZENECA-2013SE47018

PATIENT
  Age: 12080 Day
  Sex: Male

DRUGS (7)
  1. SYMBICORT PMDI [Suspect]
     Indication: ASTHMA
     Route: 055
  2. SPIRIVA [Concomitant]
  3. FLUOCINONIDE [Concomitant]
  4. MONTELUKAST [Concomitant]
  5. PROVENTIL [Concomitant]
  6. XOPINEX [Concomitant]
  7. ZYRTEC [Concomitant]

REACTIONS (1)
  - Pulmonary embolism [Recovering/Resolving]
